FAERS Safety Report 11730915 (Version 1)
Quarter: 2015Q4

REPORT INFORMATION
  Report Type: Spontaneous
  Country: US (occurrence: None)
  Receive Date: 20151112
  Receipt Date: 20151112
  Transmission Date: 20160304
  Serious: No
  Sender: FDA-Public Use
  Company Number: None

PATIENT
  Sex: Female
  Weight: 78.02 kg

DRUGS (5)
  1. VITAMIN D [Concomitant]
     Active Substance: CHOLECALCIFEROL
  2. REFRESH [Concomitant]
     Active Substance: UNSPECIFIED INGREDIENT
  3. PREDNISOLONE. [Suspect]
     Active Substance: PREDNISOLONE
     Indication: CATARACT OPERATION
     Dosage: AC 1%; ONE DROP 3 TIMES A DAY
     Dates: start: 20150909, end: 20151002
  4. PREDNISOLONE. [Suspect]
     Active Substance: PREDNISOLONE
     Indication: EYE PAIN
     Dosage: AC 1%; ONE DROP 3 TIMES A DAY
     Dates: start: 20150909, end: 20151002
  5. VITAMIN B12 [Concomitant]
     Active Substance: CYANOCOBALAMIN

REACTIONS (1)
  - Vision blurred [None]
